FAERS Safety Report 6180258-1 (Version None)
Quarter: 2009Q2

REPORT INFORMATION
  Report Type: 
  Country: None (occurrence: None)
  Receive Date: 20090504
  Receipt Date: 20090130
  Transmission Date: 20091009
  Serious: Yes (Hospitalization)
  Sender: FDA-Public Use
  Company Number: KV200900138

PATIENT
  Age: 68 Year
  Sex: Female
  Weight: 73.5 kg

DRUGS (5)
  1. MORPHINE SULFATE [Suspect]
     Indication: PAIN IN EXTREMITY
     Dosage: 30 MG, ORAL
     Route: 048
     Dates: start: 20080619, end: 20080620
  2. HYDROCHLOROTHIAZIDE [Concomitant]
  3. GABAPENTIN [Concomitant]
  4. PERCOCET /00446701/ (OXYCODONE HYDROCHLORIDE, OXYCODONE TEREPHTHALATE, [Concomitant]
  5. RANITIDINE [Concomitant]

REACTIONS (8)
  - CHEST PAIN [None]
  - CORONARY ARTERY DISEASE [None]
  - DERMATITIS ALLERGIC [None]
  - DYSPNOEA [None]
  - HYPERLIPIDAEMIA [None]
  - HYPOAESTHESIA [None]
  - PRODUCT QUALITY ISSUE [None]
  - PRURITUS [None]
